FAERS Safety Report 7826519-9 (Version None)
Quarter: 2011Q4

REPORT INFORMATION
  Report Type: 
  Country: None (occurrence: None)
  Receive Date: 20111017
  Receipt Date: 20090326
  Transmission Date: 20120403
  Serious: No
  Sender: FDA-Public Use
  Company Number: 2009020876

PATIENT

DRUGS (1)
  1. CYTOGAM [Suspect]
     Dosage: (400 MG/KG/DAY EVERY OTHER DAY ; 4-5 G EVERY DAY INTRAVENOUS (NOT OTHERWISE SPECIFIED))
     Route: 042

REACTIONS (1)
  - ANAPHYLACTIC REACTION [None]
